FAERS Safety Report 12805349 (Version 1)
Quarter: 2016Q4

REPORT INFORMATION
  Report Type: Report from Study
  Country: US (occurrence: US)
  Receive Date: 20161004
  Receipt Date: 20161004
  Transmission Date: 20170207
  Serious: Yes (Other)
  Sender: FDA-Public Use
  Company Number: US-ROCHE-1466761

PATIENT
  Age: 74 Year
  Sex: Female
  Weight: 87.1 kg

DRUGS (4)
  1. CARBOPLATIN. [Suspect]
     Active Substance: CARBOPLATIN
     Indication: OVARIAN EPITHELIAL CANCER
     Dosage: DOSE: 6 AUC ?LAST DOSE PRIOR TO SAE 04/SEP/2014
     Route: 042
     Dates: start: 20140713
  2. VELIPARIB [Suspect]
     Active Substance: VELIPARIB
     Indication: OVARIAN EPITHELIAL CANCER
     Dosage: LAST DOSE PRIOR TO SAE WAS ON 08/SEP/2014
     Route: 048
     Dates: start: 20140713
  3. PACLITAXEL. [Suspect]
     Active Substance: PACLITAXEL
     Indication: OVARIAN EPITHELIAL CANCER
     Dosage: LAST DOSE PRIOR TO SAE WAS ON 04/SEP/2014
     Route: 042
     Dates: start: 20140713
  4. BEVACIZUMAB [Suspect]
     Active Substance: BEVACIZUMAB
     Indication: OVARIAN EPITHELIAL CANCER
     Route: 042
     Dates: start: 20140713, end: 20140805

REACTIONS (5)
  - Dehydration [Unknown]
  - Syncope [Unknown]
  - Neutrophil count decreased [Unknown]
  - Urinary tract infection [Unknown]
  - Syncope [Recovered/Resolved]

NARRATIVE: CASE EVENT DATE: 20140910
